FAERS Safety Report 6797171-9 (Version None)
Quarter: 2010Q2

REPORT INFORMATION
  Report Type: 
  Country: None (occurrence: None)
  Receive Date: 20100618
  Receipt Date: 20100609
  Transmission Date: 20101027
  Serious: Yes (Hospitalization)
  Sender: FDA-Public Use
  Company Number: 2010SP032433

PATIENT
  Sex: Female
  Weight: 97 kg

DRUGS (6)
  1. ROCURONIUM BROMIDE [Suspect]
     Dosage: 70 MG; QD
     Dates: start: 20100402, end: 20100402
  2. DESFLURANE [Suspect]
     Dates: start: 20100402, end: 20100402
  3. MIDAZOLAM (OTHER MFR) (MIDAZOLAM 00634101/) [Suspect]
     Dosage: 2 MG; QD
     Dates: start: 20100402, end: 20100402
  4. PROPOFOL [Suspect]
     Dosage: 20 MG; QD
     Dates: start: 20100402, end: 20100402
  5. CEFOTAXIME SODIUM [Suspect]
     Dosage: 2 GM; QD
     Dates: start: 20100402, end: 20100402
  6. CLINDAMYCIN HYDROCHLORIDE [Concomitant]

REACTIONS (1)
  - JAUNDICE CHOLESTATIC [None]
